FAERS Safety Report 5937956-1 (Version None)
Quarter: 2008Q4

REPORT INFORMATION
  Report Type: 
  Country: None (occurrence: None)
  Receive Date: 20081031
  Receipt Date: 20081022
  Transmission Date: 20090506
  Serious: Yes (Other)
  Sender: FDA-Public Use
  Company Number: SE-PFIZER INC-2008055620

PATIENT
  Age: 28 Year
  Sex: Male

DRUGS (1)
  1. ZELDOX (CAPSULES) [Suspect]
     Indication: PSYCHOTIC DISORDER

REACTIONS (6)
  - ANXIETY [None]
  - INTRACRANIAL PRESSURE INCREASED [None]
  - LOSS OF DREAMING [None]
  - STRESS [None]
  - THOUGHT BLOCKING [None]
  - VISION BLURRED [None]
